FAERS Safety Report 10279743 (Version 1)
Quarter: 2014Q3

REPORT INFORMATION
  Report Type: Spontaneous
  Country: GB (occurrence: None)
  Receive Date: 20140702
  Receipt Date: 20140702
  Transmission Date: 20150326
  Serious: Yes (Other)
  Sender: FDA-Public Use
  Company Number: AUR-APL-2014-06718

PATIENT
  Age: 19 Year
  Sex: Female
  Weight: 52.9 kg

DRUGS (3)
  1. CHLORPHENAMINE (CHLORPHENAMINE) [Concomitant]
  2. DEPO-PROVERA (MEDROXYPROGESTERONE ACETATE) [Concomitant]
  3. NAPROXEN (NAPROXEN) UNKNOWN [Suspect]
     Active Substance: NAPROXEN
     Indication: PRODUCT USED FOR UNKNOWN INDICATION
     Dates: start: 20140606

REACTIONS (2)
  - Dyspnoea [None]
  - Local swelling [None]

NARRATIVE: CASE EVENT DATE: 20140606
